FAERS Safety Report 15732901 (Version 1)
Quarter: 2018Q4

REPORT INFORMATION
  Report Type: Spontaneous
  Country: US (occurrence: US)
  Receive Date: 20181217
  Receipt Date: 20181217
  Transmission Date: 20190205
  Serious: Yes (Death)
  Sender: FDA-Public Use
  Company Number: US-ROCHE-2231478

PATIENT
  Sex: Female

DRUGS (6)
  1. SPIRIVA [Concomitant]
     Active Substance: TIOTROPIUM BROMIDE MONOHYDRATE
  2. XOLAIR [Suspect]
     Active Substance: OMALIZUMAB
     Indication: ASTHMA
     Route: 058
     Dates: start: 20171212
  3. MELATONIN [Concomitant]
     Active Substance: MELATONIN
  4. SYMBICORT [Concomitant]
     Active Substance: BUDESONIDE\FORMOTEROL FUMARATE DIHYDRATE
  5. BUDESONIDE. [Concomitant]
     Active Substance: BUDESONIDE
  6. TURMERIC [Concomitant]
     Active Substance: HERBALS\TURMERIC

REACTIONS (1)
  - Death [Fatal]
